FAERS Safety Report 17251141 (Version 1)
Quarter: 2020Q1

REPORT INFORMATION
  Report Type: Spontaneous
  Country: US (occurrence: US)
  Receive Date: 20200108
  Receipt Date: 20200108
  Transmission Date: 20200409
  Serious: Yes (Hospitalization, Disabling, Other)
  Sender: FDA-Public Use
  Company Number: None

PATIENT
  Age: 49 Year
  Sex: Female
  Weight: 54 kg

DRUGS (10)
  1. HYDROCODONE [Concomitant]
     Active Substance: HYDROCODONE
  2. MULTIVITAMIN [Concomitant]
     Active Substance: VITAMINS
  3. LEVAQUIN [Suspect]
     Active Substance: LEVOFLOXACIN
     Indication: URINARY TRACT INFECTION
  4. LEVAQUIN [Suspect]
     Active Substance: LEVOFLOXACIN
     Indication: CHRONIC OBSTRUCTIVE PULMONARY DISEASE
  5. LEVAQUIN [Suspect]
     Active Substance: LEVOFLOXACIN
     Indication: BRONCHITIS
  6. BREO ELLIPTIC [Concomitant]
  7. CALCIUM [Concomitant]
     Active Substance: CALCIUM
  8. MAGNESIUM [Concomitant]
     Active Substance: MAGNESIUM
  9. VITAMIN B [Concomitant]
     Active Substance: VITAMIN B
  10. PREDNISONE. [Suspect]
     Active Substance: PREDNISONE

REACTIONS (5)
  - Pain in extremity [None]
  - Myalgia [None]
  - Feeling abnormal [None]
  - Arthralgia [None]
  - Depression [None]

NARRATIVE: CASE EVENT DATE: 20000101
